FAERS Safety Report 5036711-7 (Version None)
Quarter: 2006Q2

REPORT INFORMATION
  Report Type: 
  Country: None (occurrence: None)
  Receive Date: 20060616
  Receipt Date: 20060329
  Transmission Date: 20061013
  Serious: No
  Sender: FDA-Public Use
  Company Number: 2006RL000111

PATIENT
  Age: 63 Year
  Sex: Female
  Weight: 103.4201 kg

DRUGS (7)
  1. OMACOR [Suspect]
     Indication: HYPERTRIGLYCERIDAEMIA
     Dosage: 3 GM;QD;PO
     Route: 048
     Dates: start: 20060301, end: 20060327
  2. CAPOZIDE (CAPOZIDE) [Suspect]
  3. TRICOR [Concomitant]
  4. LIPITOR [Concomitant]
  5. NAPROXEN [Concomitant]
  6. ZYLOPRIM [Concomitant]
  7. CAPTOPRIL [Concomitant]

REACTIONS (3)
  - ARTHRALGIA [None]
  - DRUG INTERACTION [None]
  - JOINT SWELLING [None]
